FAERS Safety Report 23117184 (Version 1)
Quarter: 2023Q4

REPORT INFORMATION
  Report Type: Spontaneous
  Country: CN (occurrence: CN)
  Receive Date: 20231027
  Receipt Date: 20231027
  Transmission Date: 20240109
  Serious: Yes (Other)
  Sender: FDA-Public Use
  Company Number: CN-002147023-NVSC2023CN226208

PATIENT

DRUGS (1)
  1. RUXOLITINIB [Suspect]
     Active Substance: RUXOLITINIB
     Indication: Myelofibrosis
     Dosage: 5 MG, TID
     Route: 048
     Dates: start: 20230718, end: 20231018

REACTIONS (3)
  - Immunodeficiency [Unknown]
  - Herpes virus infection [Unknown]
  - Rubella antibody positive [Unknown]

NARRATIVE: CASE EVENT DATE: 20231013
